FAERS Safety Report 14652544 (Version 1)
Quarter: 2018Q1

REPORT INFORMATION
  Report Type: Spontaneous
  Country: US (occurrence: US)
  Receive Date: 20180316
  Receipt Date: 20180316
  Transmission Date: 20180509
  Serious: Yes (Hospitalization)
  Sender: FDA-Public Use
  Company Number: None

PATIENT
  Age: 22 Year
  Sex: Female
  Weight: 66.8 kg

DRUGS (1)
  1. NUVIGIL [Suspect]
     Active Substance: ARMODAFINIL
     Dates: end: 20180219

REACTIONS (15)
  - Pulmonary cavitation [None]
  - Sepsis [None]
  - Hypomagnesaemia [None]
  - Upper respiratory tract infection [None]
  - Seizure [None]
  - Lactic acidosis [None]
  - Hypokalaemia [None]
  - Pneumonia [None]
  - Leukocytosis [None]
  - Intracranial mass [None]
  - Pulmonary mass [None]
  - Nocardiosis [None]
  - Productive cough [None]
  - Brain oedema [None]
  - Diabetes mellitus [None]

NARRATIVE: CASE EVENT DATE: 20180220
